FAERS Safety Report 7825025-5 (Version None)
Quarter: 2011Q4

REPORT INFORMATION
  Report Type: 
  Country: None (occurrence: None)
  Receive Date: 20111019
  Receipt Date: 20110426
  Transmission Date: 20120403
  Serious: No
  Sender: FDA-Public Use
  Company Number: US-BRISTOL-MYERS SQUIBB COMPANY-15645062

PATIENT
  Age: 62 Year
  Sex: Female
  Weight: 83 kg

DRUGS (2)
  1. AVALIDE [Suspect]
     Indication: HYPERTENSION
     Dosage: STARTED 2003 OR 2004, INTERRUPTED, AND RESTARTED
     Dates: start: 20030101
  2. COREG [Concomitant]

REACTIONS (3)
  - FEELING ABNORMAL [None]
  - SENSATION OF HEAVINESS [None]
  - DYSPNOEA [None]
